FAERS Safety Report 12297383 (Version 2)
Quarter: 2016Q4

REPORT INFORMATION
  Report Type: Spontaneous
  Country: US (occurrence: US)
  Receive Date: 20160422
  Receipt Date: 20161024
  Transmission Date: 20170207
  Serious: Yes (Other)
  Sender: FDA-Public Use
  Company Number: US-TEVA-652733USA

PATIENT
  Age: 32 Year
  Sex: Female

DRUGS (1)
  1. COPAXONE [Suspect]
     Active Substance: GLATIRAMER ACETATE
     Dosage: UNKNOWN FORM STRENGTH
     Route: 065

REACTIONS (5)
  - Paraesthesia [Unknown]
  - Neuromyelitis optica spectrum disorder [Unknown]
  - Multiple sclerosis [Unknown]
  - Central nervous system lesion [Unknown]
  - Treatment failure [Unknown]
